FAERS Safety Report 17730477 (Version 2)
Quarter: 2020Q4

REPORT INFORMATION
  Report Type: Other
  Country: CA (occurrence: CA)
  Receive Date: 20200430
  Receipt Date: 20201204
  Transmission Date: 20210113
  Serious: Yes (Other)
  Sender: FDA-Public Use
  Company Number: CA-PFIZER INC-2020172824

PATIENT
  Age: 40 Year
  Sex: Male

DRUGS (10)
  1. AZITHROMYCIN ANHYDROUS. [Suspect]
     Active Substance: AZITHROMYCIN ANHYDROUS
     Indication: MYCOBACTERIUM AVIUM COMPLEX INFECTION
  2. MYCOPHENOLATE MOFETIL. [Suspect]
     Active Substance: MYCOPHENOLATE MOFETIL
     Indication: IMMUNOSUPPRESSION
     Dosage: UNK
     Route: 065
  3. RIFAMPIN. [Suspect]
     Active Substance: RIFAMPIN
     Indication: ANTIBIOTIC THERAPY
     Dosage: 300 MG, ONCE A DAY
     Route: 065
  4. ETHAMBUTOL [Suspect]
     Active Substance: ETHAMBUTOL HYDROCHLORIDE
     Indication: ANTIBIOTIC THERAPY
     Dosage: 800 MG, ONCE DAILY
     Route: 065
  5. INSULIN [Concomitant]
     Active Substance: INSULIN NOS
     Indication: TYPE 1 DIABETES MELLITUS
     Dosage: UNK
     Route: 065
  6. ETHAMBUTOL [Suspect]
     Active Substance: ETHAMBUTOL HYDROCHLORIDE
     Indication: MYCOBACTERIUM AVIUM COMPLEX INFECTION
  7. RIFAMPIN. [Suspect]
     Active Substance: RIFAMPIN
     Indication: MYCOBACTERIUM AVIUM COMPLEX INFECTION
  8. AZITHROMYCIN ANHYDROUS. [Suspect]
     Active Substance: AZITHROMYCIN ANHYDROUS
     Indication: ANTIBIOTIC THERAPY
     Dosage: 625 MG, ONCE A DAY
     Route: 065
  9. PREDNISONE. [Suspect]
     Active Substance: PREDNISONE
     Indication: IMMUNOSUPPRESSION
     Dosage: UNK
     Route: 065
  10. CICLOSPORIN [Suspect]
     Active Substance: CYCLOSPORINE
     Indication: IMMUNOSUPPRESSION
     Dosage: UNK
     Route: 065

REACTIONS (2)
  - Drug ineffective [Unknown]
  - Mycobacterium avium complex infection [Recovered/Resolved]
